FAERS Safety Report 9120387 (Version 1)
Quarter: 2013Q1

REPORT INFORMATION
  Report Type: Spontaneous
  Country: IT (occurrence: IT)
  Receive Date: 20130226
  Receipt Date: 20130226
  Transmission Date: 20140127
  Serious: Yes (Hospitalization)
  Sender: FDA-Public Use
  Company Number: PHHY2013IT018460

PATIENT
  Age: 77 Year
  Sex: Female

DRUGS (3)
  1. FUROSEMIDE [Suspect]
     Indication: PULMONARY HYPERTENSION
     Dosage: 75 MG, DAILY
     Route: 048
     Dates: start: 20120916, end: 20130120
  2. POTASSIUM [Suspect]
     Indication: PULMONARY HYPERTENSION
     Dosage: 25 MG, DAILY
     Route: 048
     Dates: start: 20121119, end: 20130120
  3. COLIMICINA [Suspect]
     Indication: ACINETOBACTER INFECTION
     Dosage: 3000000 IU, DAILY
     Route: 030
     Dates: start: 20130107, end: 20130117

REACTIONS (3)
  - Renal failure acute [Recovered/Resolved with Sequelae]
  - Haemodialysis [Recovered/Resolved with Sequelae]
  - Hyperkalaemia [None]
